FAERS Safety Report 4354330-2 (Version None)
Quarter: 2004Q2

REPORT INFORMATION
  Report Type: 
  Country: None (occurrence: None)
  Receive Date: 20040503
  Receipt Date: 20040421
  Transmission Date: 20050107
  Serious: Yes (Hospitalization, Other)
  Sender: FDA-Public Use
  Company Number: 2004027539

PATIENT
  Age: 1 Day
  Sex: Female
  Weight: 0.65 kg

DRUGS (3)
  1. VIRACEPT [Suspect]
     Indication: HIV INFECTION
     Dosage: 10 TABLETS DAILY (DAILY), ORAL
     Route: 048
     Dates: start: 20010630
  2. ZIDOVUDINE W/LAMIVUDINE (LAMIVUDINE ZIDOVUDINE) [Suspect]
     Indication: HIV INFECTION
     Dosage: 2 DOSE FORMS DAILY
     Dates: start: 20010630
  3. VALACYCLOVIR HCL [Concomitant]

REACTIONS (24)
  - ASPARTATE AMINOTRANSFERASE INCREASED [None]
  - BLOOD CREATININE INCREASED [None]
  - BLOOD LACTATE DEHYDROGENASE INCREASED [None]
  - BLOOD LACTIC ACID INCREASED [None]
  - CARDIOMEGALY [None]
  - CONGENITAL ATRIAL SEPTAL DEFECT [None]
  - CONGENITAL PULMONARY HYPERTENSION [None]
  - FOETAL DISORDER [None]
  - FOETAL GROWTH RETARDATION [None]
  - HAEMOGLOBIN DECREASED [None]
  - LEUKOPENIA NEONATAL [None]
  - LYMPHOCYTE COUNT DECREASED [None]
  - MATERNAL DRUGS AFFECTING FOETUS [None]
  - NEONATAL DISORDER [None]
  - NEONATAL HEPATOMEGALY [None]
  - NEONATAL RESPIRATORY DISTRESS SYNDROME [None]
  - OLIGOHYDRAMNIOS [None]
  - PLATELET COUNT DECREASED [None]
  - PLEURAL EFFUSION [None]
  - PREGNANCY [None]
  - PREMATURE BABY [None]
  - RED BLOOD CELL COUNT DECREASED [None]
  - TROPONIN INCREASED [None]
  - WHITE BLOOD CELL COUNT DECREASED [None]
